FAERS Safety Report 4429800-9 (Version None)
Quarter: 2004Q3

REPORT INFORMATION
  Report Type: 
  Country: None (occurrence: None)
  Receive Date: 20040817
  Receipt Date: 20040817
  Transmission Date: 20050211
  Serious: Yes (Hospitalization)
  Sender: FDA-Public Use
  Company Number: None

PATIENT
  Age: 58 Year
  Sex: Female
  Weight: 47.5 kg

DRUGS (9)
  1. PACLITAXEL [Suspect]
     Indication: BLADDER CANCER
     Dosage: 200MG/M2 D1 IV
     Route: 042
     Dates: start: 20040414, end: 20040804
  2. CARBOPLATIN [Suspect]
     Indication: BLADDER CANCER
     Dosage: AUC = 5 D1 IV
     Route: 042
     Dates: start: 20040414, end: 20040804
  3. KLONOPIN [Concomitant]
  4. COMPAZINE [Concomitant]
  5. VICODIN [Concomitant]
  6. SENNA [Concomitant]
  7. KYTRIL [Concomitant]
  8. BENADRYL [Concomitant]
  9. GEMCITABINE [Suspect]
     Indication: BLADDER CANCER
     Dosage: 800 MG/M2 D 1,8, IV
     Route: 042
     Dates: start: 20040414, end: 20040811

REACTIONS (3)
  - PLATELET COUNT DECREASED [None]
  - PYREXIA [None]
  - SINUSITIS [None]
